FAERS Safety Report 16155432 (Version 1)
Quarter: 2019Q2

REPORT INFORMATION
  Report Type: Report from Study
  Country: None (occurrence: US)
  Receive Date: 20190403
  Receipt Date: 20190403
  Transmission Date: 20190711
  Serious: Yes (Other)
  Sender: FDA-Public Use
  Company Number: US-ABBVIE-19K-163-2630941-00

PATIENT
  Age: 70 Year
  Sex: Male

DRUGS (3)
  1. HUMIRA [Suspect]
     Active Substance: ADALIMUMAB
     Indication: COLITIS ULCERATIVE
     Dosage: DAY 15
     Route: 058
     Dates: start: 20190124, end: 20190124
  2. HUMIRA [Suspect]
     Active Substance: ADALIMUMAB
     Route: 058
     Dates: start: 20190207
  3. HUMIRA [Suspect]
     Active Substance: ADALIMUMAB
     Indication: COLITIS ULCERATIVE
     Dosage: DAY 1
     Route: 058
     Dates: start: 20190110, end: 20190110

REACTIONS (21)
  - Post procedural haemorrhage [Unknown]
  - Post procedural complication [Unknown]
  - Pollakiuria [Not Recovered/Not Resolved]
  - Haemorrhoidal haemorrhage [Unknown]
  - Abdominal pain [Not Recovered/Not Resolved]
  - Diarrhoea [Not Recovered/Not Resolved]
  - Constipation [Not Recovered/Not Resolved]
  - Injection site erythema [Unknown]
  - Muscle spasms [Recovering/Resolving]
  - Weight decreased [Not Recovered/Not Resolved]
  - Abnormal faeces [Recovering/Resolving]
  - Rectal haemorrhage [Recovered/Resolved]
  - Rectal haemorrhage [Not Recovered/Not Resolved]
  - Vitreous floaters [Unknown]
  - Frequent bowel movements [Recovering/Resolving]
  - Conjunctivitis [Unknown]
  - Malaise [Not Recovered/Not Resolved]
  - Injection site rash [Recovered/Resolved]
  - Nausea [Not Recovered/Not Resolved]
  - Defaecation urgency [Recovering/Resolving]
  - Pyrexia [Recovered/Resolved]

NARRATIVE: CASE EVENT DATE: 2019
